FAERS Safety Report 9237337 (Version 1)
Quarter: 2013Q2

REPORT INFORMATION
  Report Type: Spontaneous
  Country: ZA (occurrence: ZA)
  Receive Date: 20130417
  Receipt Date: 20130417
  Transmission Date: 20140414
  Serious: Yes (Hospitalization)
  Sender: FDA-Public Use
  Company Number: ZA-ABBOTT-13P-143-1075448-00

PATIENT
  Age: 39 Year
  Sex: Male
  Weight: 102 kg

DRUGS (6)
  1. HUMIRA [Suspect]
     Indication: ANKYLOSING SPONDYLITIS
     Route: 058
     Dates: start: 2011
  2. UNSIGNED [Suspect]
     Indication: PRODUCT USED FOR UNKNOWN INDICATION
  3. UNSIGNED [Suspect]
     Indication: PRODUCT USED FOR UNKNOWN INDICATION
  4. TRAMACET [Concomitant]
     Indication: PRODUCT USED FOR UNKNOWN INDICATION
     Route: 048
  5. PREDNISONE [Concomitant]
     Indication: PRODUCT USED FOR UNKNOWN INDICATION
     Route: 048
  6. TREPILINE [Concomitant]
     Indication: PRODUCT USED FOR UNKNOWN INDICATION

REACTIONS (4)
  - Nephrolithiasis [Unknown]
  - Back pain [Not Recovered/Not Resolved]
  - Hepatic enzyme increased [Unknown]
  - Urinary retention [Not Recovered/Not Resolved]
